FAERS Safety Report 4300895-6 (Version None)
Quarter: 2004Q1

REPORT INFORMATION
  Report Type: 
  Country: None (occurrence: None)
  Receive Date: 20040219
  Receipt Date: 20040203
  Transmission Date: 20041129
  Serious: Yes (Other)
  Sender: FDA-Public Use
  Company Number: DSA_23952_2004

PATIENT
  Age: 52 Year
  Sex: Female

DRUGS (17)
  1. LORAZEPAM [Suspect]
     Dosage: 2.5 MG QD
     Dates: start: 20030829, end: 20030829
  2. LORAZEPAM [Suspect]
     Dosage: 2.5 MG QD
     Dates: start: 20030831, end: 20030831
  3. LORAZEPAM [Suspect]
     Dosage: 2.5 MG QD
     Dates: start: 20030902, end: 20030902
  4. LORAZEPAM [Suspect]
     Dosage: 2.5 MG QD
     Dates: start: 20030906, end: 20030906
  5. LORAZEPAM [Suspect]
     Dosage: 2.5  MG QD
     Dates: start: 20030908, end: 20030908
  6. PRAZINE [Suspect]
     Indication: SCHIZOPHRENIA, PARANOID TYPE
     Dosage: 100 MG QD
     Dates: start: 20030828, end: 20030829
  7. PRAZINE [Suspect]
     Indication: SCHIZOPHRENIA, PARANOID TYPE
     Dosage: 100 MG QD
     Dates: start: 20030903, end: 20030905
  8. PRAZINE [Suspect]
     Indication: SCHIZOPHRENIA, PARANOID TYPE
     Dosage: 50 MG
     Dates: start: 20030901, end: 20030908
  9. HALDOL [Suspect]
     Dosage: 20 MG QD
     Dates: end: 20030826
  10. HALDOL [Suspect]
     Dosage: 25 MG QD
     Dates: start: 20030827, end: 20030828
  11. HALDOL [Suspect]
     Dosage: 4 MG QD
     Dates: start: 20030829, end: 20030908
  12. HALDOL [Suspect]
     Dosage: 2 MG QD
     Dates: start: 20030909, end: 20030911
  13. FLUDEX [Concomitant]
  14. TENORMIN [Concomitant]
  15. VALPROIC ACID [Concomitant]
  16. RISPERDAL CONSTA [Concomitant]
  17. RISPERDAL [Concomitant]

REACTIONS (6)
  - BLOOD ALKALINE PHOSPHATASE INCREASED [None]
  - BLOOD GLUCOSE INCREASED [None]
  - DRUG LEVEL BELOW THERAPEUTIC [None]
  - ENURESIS [None]
  - SEDATION [None]
  - SUDDEN ONSET OF SLEEP [None]
